FAERS Safety Report 8597045-7 (Version None)
Quarter: 2012Q3

REPORT INFORMATION
  Report Type: 
  Country: None (occurrence: None)
  Receive Date: 20120816
  Receipt Date: 20120808
  Transmission Date: 20120928
  Serious: Yes (Hospitalization)
  Sender: FDA-Public Use
  Company Number: NL-AMGEN-NLDSP2012050867

PATIENT
  Sex: Female

DRUGS (2)
  1. METHOTREXATE SODIUM [Concomitant]
     Dosage: UNK
  2. ENBREL [Suspect]
     Indication: RHEUMATOID ARTHRITIS
     Dosage: 25 MG, 2X/WEEK
     Dates: start: 20080101, end: 20120101

REACTIONS (2)
  - ARTHRALGIA [None]
  - PLEURAL EFFUSION [None]
